FAERS Safety Report 7241519-8 (Version None)
Quarter: 2011Q1

REPORT INFORMATION
  Report Type: 
  Country: None (occurrence: None)
  Receive Date: 20110120
  Receipt Date: 20110120
  Transmission Date: 20110831
  Serious: No
  Sender: FDA-Public Use
  Company Number: None

PATIENT
  Sex: Male
  Weight: 77.1115 kg

DRUGS (1)
  1. CIPROFLOXACIN [Suspect]
     Indication: SINUSITIS
     Dosage: ONE PILL TWICE DAILY PO
     Route: 048
     Dates: start: 20110106, end: 20110116

REACTIONS (4)
  - LOOSE TOOTH [None]
  - DISCOMFORT [None]
  - PAIN [None]
  - MOUTH ULCERATION [None]
